FAERS Safety Report 10678948 (Version 2)
Quarter: 2014Q4

REPORT INFORMATION
  Report Type: Spontaneous
  Country: US (occurrence: US)
  Receive Date: 20141229
  Receipt Date: 20141229
  Transmission Date: 20150529
  Serious: Yes (Hospitalization, Other)
  Sender: FDA-Public Use
  Company Number: US-SA-2014SA118741

PATIENT
  Age: 56 Year
  Sex: Male

DRUGS (8)
  1. PLAVIX [Suspect]
     Active Substance: CLOPIDOGREL BISULFATE
     Indication: ACUTE CORONARY SYNDROME
     Route: 048
     Dates: start: 20010629, end: 20020818
  2. ASPIRIN. [Concomitant]
     Active Substance: ASPIRIN
  3. PRAVACHOL [Concomitant]
     Active Substance: PRAVASTATIN SODIUM
  4. ALTACE [Concomitant]
     Active Substance: RAMIPRIL
  5. METOPROLOL SUCCINATE. [Concomitant]
     Active Substance: METOPROLOL SUCCINATE
  6. PLAVIX [Suspect]
     Active Substance: CLOPIDOGREL BISULFATE
     Indication: STENT PLACEMENT
     Route: 048
     Dates: start: 20010629, end: 20020818
  7. PLAVIX [Suspect]
     Active Substance: CLOPIDOGREL BISULFATE
     Indication: GASTRIC ULCER
     Route: 048
     Dates: start: 20010629, end: 20020818
  8. NITROGLYCERINE [Concomitant]
     Active Substance: NITROGLYCERIN
     Route: 048

REACTIONS (3)
  - Haemorrhage [Unknown]
  - Brain injury [Unknown]
  - Gastrointestinal haemorrhage [Unknown]

NARRATIVE: CASE EVENT DATE: 20140814
